FAERS Safety Report 21023098 (Version 2)
Quarter: 2022Q4

REPORT INFORMATION
  Report Type: Report from Study
  Country: US (occurrence: US)
  Receive Date: 20220629
  Receipt Date: 20221209
  Transmission Date: 20230113
  Serious: No
  Sender: FDA-Public Use
  Company Number: US-TAKEDA-2022TUS042994

PATIENT
  Sex: Male

DRUGS (9)
  1. IDURSULFASE [Suspect]
     Active Substance: IDURSULFASE
     Indication: Mucopolysaccharidosis II
     Dosage: 2 DOSAGE FORM, 1/WEEK
     Route: 065
     Dates: start: 2013
  2. IDURSULFASE [Suspect]
     Active Substance: IDURSULFASE
     Dosage: 6 MILLIGRAM, 1/WEEK
     Route: 042
     Dates: start: 20221021
  3. ACETAMINOPHEN [Concomitant]
     Active Substance: ACETAMINOPHEN
     Dosage: 160 MILLIGRAM
     Route: 065
  4. DIPHENHYDRAMINE [Concomitant]
     Active Substance: DIPHENHYDRAMINE
     Dosage: 12.5 MILLIGRAM
     Route: 065
  5. DIPHENHYDRAMINE [Concomitant]
     Active Substance: DIPHENHYDRAMINE
     Dosage: 50 MILLIGRAM
     Route: 065
  6. EPINEPHRINE [Concomitant]
     Active Substance: EPINEPHRINE
     Dosage: 0.15 MILLIGRAM
     Route: 065
  7. LIDOCAINE [Concomitant]
     Active Substance: LIDOCAINE
  8. SODIUM CHLORIDE [Concomitant]
     Active Substance: SODIUM CHLORIDE
  9. SOLU-MEDROL [Concomitant]
     Active Substance: METHYLPREDNISOLONE SODIUM SUCCINATE

REACTIONS (5)
  - Heart rate increased [Unknown]
  - Pyrexia [Unknown]
  - Device infusion issue [Unknown]
  - Product preparation error [Unknown]
  - Product dose omission issue [Unknown]
